FAERS Safety Report 6462921-8 (Version None)
Quarter: 2009Q4

REPORT INFORMATION
  Report Type: 
  Country: None (occurrence: None)
  Receive Date: 20091123
  Receipt Date: 20091109
  Transmission Date: 20100525
  Serious: Yes (Death)
  Sender: FDA-Public Use
  Company Number: 2009AC000390

PATIENT
  Age: 86 Year
  Sex: Female

DRUGS (8)
  1. DIGOXIN [Suspect]
     Dosage: 0.125 MG;QD;PO
     Route: 048
     Dates: start: 20060619
  2. DETROL [Concomitant]
  3. SULAR [Concomitant]
  4. NASONEX [Concomitant]
  5. GABAPENTIN [Concomitant]
  6. ASPIRIN [Concomitant]
  7. VITAMINS [Concomitant]
  8. ATENOL [Concomitant]

REACTIONS (11)
  - ANHEDONIA [None]
  - ARTERIOSCLEROSIS CORONARY ARTERY [None]
  - ECONOMIC PROBLEM [None]
  - EMOTIONAL DISORDER [None]
  - FATIGUE [None]
  - MENTAL DISORDER [None]
  - MULTIPLE INJURIES [None]
  - MYOCARDIAL INFARCTION [None]
  - OSTEOARTHRITIS [None]
  - PAIN [None]
  - UNEVALUABLE EVENT [None]
